FAERS Safety Report 14309392 (Version 1)
Quarter: 2017Q4

REPORT INFORMATION
  Report Type: Spontaneous
  Country: SK (occurrence: SK)
  Receive Date: 20171220
  Receipt Date: 20171220
  Transmission Date: 20180321
  Serious: Yes (Hospitalization, Disabling)
  Sender: FDA-Public Use
  Company Number: SK-ABBVIE-17K-260-2145669-00

PATIENT
  Age: 69 Year
  Sex: Female
  Weight: 80 kg

DRUGS (5)
  1. NAFTIDROFURYL [Concomitant]
     Active Substance: NAFRONYL
     Indication: VASCULAR HEADACHE
     Route: 048
  2. TREXAN [Suspect]
     Active Substance: METHOTREXATE SODIUM
     Indication: PSORIASIS
     Route: 048
     Dates: start: 201202, end: 201708
  3. TREXAN [Suspect]
     Active Substance: METHOTREXATE SODIUM
     Indication: PSORIATIC ARTHROPATHY
  4. LUSOPRESS [Concomitant]
     Active Substance: NITRENDIPINE
     Indication: HYPERTENSION
     Route: 048
  5. HUMIRA [Suspect]
     Active Substance: ADALIMUMAB
     Indication: PSORIASIS
     Route: 058
     Dates: start: 201106, end: 201708

REACTIONS (2)
  - Pulmonary embolism [Not Recovered/Not Resolved]
  - Astrocytoma, low grade [Not Recovered/Not Resolved]

NARRATIVE: CASE EVENT DATE: 201708
